FAERS Safety Report 8080710-8 (Version None)
Quarter: 2012Q1

REPORT INFORMATION
  Report Type: 
  Country: None (occurrence: None)
  Receive Date: 20120130
  Receipt Date: 20120130
  Transmission Date: 20120608
  Serious: Yes (Death, Hospitalization)
  Sender: FDA-Public Use
  Company Number: CA-JNJFOC-20110507762

PATIENT
  Sex: Female
  Weight: 45 kg

DRUGS (10)
  1. FLOVENT [Concomitant]
  2. SYNTHROID [Concomitant]
  3. PREVACID [Concomitant]
  4. ASAPHEN [Concomitant]
  5. CALCIUM 500 MG + VITAMIN D [Concomitant]
  6. REMICADE [Suspect]
     Indication: RHEUMATOID ARTHRITIS
     Route: 042
     Dates: start: 20080619, end: 20110228
  7. SPIRIVA [Concomitant]
  8. DESYREL [Concomitant]
  9. METHOTREXATE [Concomitant]
     Dates: start: 20080619
  10. FOLIC ACID [Concomitant]

REACTIONS (1)
  - NEOPLASM MALIGNANT [None]
